FAERS Safety Report 7626890-7 (Version None)
Quarter: 2011Q3

REPORT INFORMATION
  Report Type: 
  Country: None (occurrence: None)
  Receive Date: 20110721
  Receipt Date: 20110713
  Transmission Date: 20111222
  Serious: Yes (Other)
  Sender: FDA-Public Use
  Company Number: JP-BAYER-2011-058975

PATIENT
  Age: 43 Year
  Sex: Female
  Weight: 52 kg

DRUGS (5)
  1. HERBAL PREPARATION [Concomitant]
     Indication: ENDOMETRIAL HYPERPLASIA
     Dosage: DAILY DOSE 9 G
     Route: 048
     Dates: start: 20110308, end: 20110318
  2. YAZ [Suspect]
     Indication: ENDOMETRIAL HYPERPLASIA
     Dosage: 1 DF, QD
     Route: 048
     Dates: start: 20110301
  3. FERROUS SULFATE TAB [Suspect]
     Indication: IRON DEFICIENCY ANAEMIA
     Dosage: DAILY DOSE 100 MG
     Route: 042
     Dates: start: 20110308, end: 20110608
  4. SYNPHASE [Concomitant]
     Dosage: UNK
     Route: 048
  5. GLUCOSE [Suspect]
     Indication: IRON DEFICIENCY ANAEMIA
     Dosage: DAILY DOSE 20 ML
     Route: 042
     Dates: start: 20110308, end: 20110608

REACTIONS (9)
  - FEELING ABNORMAL [None]
  - HYPOAESTHESIA [None]
  - OROPHARYNGEAL DISCOMFORT [None]
  - ANAPHYLACTIC REACTION [None]
  - ABDOMINAL PAIN UPPER [None]
  - SHOCK [None]
  - DYSPHONIA [None]
  - DYSPNOEA [None]
  - HYPOAESTHESIA ORAL [None]
